FAERS Safety Report 7056241-0 (Version None)
Quarter: 2010Q4

REPORT INFORMATION
  Report Type: 
  Country: None (occurrence: None)
  Receive Date: 20101021
  Receipt Date: 20101012
  Transmission Date: 20110411
  Serious: Yes (Death, Hospitalization, Other)
  Sender: FDA-Public Use
  Company Number: A0882837A

PATIENT
  Age: 61 Year
  Sex: Female
  Weight: 107.5 kg

DRUGS (12)
  1. TOPOTECAN [Suspect]
     Dosage: .25MG PER DAY
     Route: 048
     Dates: start: 20100727, end: 20100919
  2. PAZOPANIB [Suspect]
     Dosage: 800MG PER DAY
     Route: 048
     Dates: start: 20100727, end: 20100919
  3. OXYGEN [Concomitant]
  4. GLUCOTROL XL [Concomitant]
     Dosage: 5MG PER DAY
     Route: 048
     Dates: start: 19980101
  5. AVANDIA [Concomitant]
     Dosage: 4MG PER DAY
     Route: 048
     Dates: start: 20060101
  6. DIOVAN [Concomitant]
     Indication: HYPERTENSION
     Dosage: 160MG PER DAY
     Route: 048
     Dates: start: 20050101
  7. ASPIRIN [Concomitant]
     Indication: PROPHYLAXIS
     Dosage: 81MG PER DAY
     Route: 048
     Dates: start: 20090701
  8. MULTI-VITAMIN [Concomitant]
     Indication: SUPPLEMENTATION THERAPY
     Dosage: 1TAB PER DAY
     Route: 048
     Dates: start: 20091201
  9. IMODIUM [Concomitant]
     Route: 048
     Dates: start: 20100810
  10. MUCINEX [Concomitant]
     Indication: RESPIRATORY TRACT CONGESTION
     Dosage: 1TAB AS REQUIRED
     Route: 048
     Dates: start: 20100722
  11. AUGMENTIN '125' [Concomitant]
     Indication: UPPER RESPIRATORY TRACT INFECTION
     Dosage: 875MG TWICE PER DAY
     Route: 048
     Dates: start: 20100809, end: 20100819
  12. PHENERGAN [Concomitant]
     Indication: NAUSEA
     Dosage: 25MG AS REQUIRED
     Route: 048
     Dates: start: 20100810, end: 20100813

REACTIONS (3)
  - CARDIAC FAILURE CONGESTIVE [None]
  - INTERSTITIAL LUNG DISEASE [None]
  - RESPIRATORY FAILURE [None]
